FAERS Safety Report 12412730 (Version 3)
Quarter: 2016Q3

REPORT INFORMATION
  Report Type: Report from Study
  Country: US (occurrence: US)
  Receive Date: 20160527
  Receipt Date: 20160805
  Transmission Date: 20161109
  Serious: Yes (Hospitalization, Other)
  Sender: FDA-Public Use
  Company Number: US-BRISTOL-MYERS SQUIBB COMPANY-BMS-2016-039943

PATIENT
  Age: 23 Year
  Sex: Male

DRUGS (4)
  1. CYTARABIN [Suspect]
     Active Substance: CYTARABINE
     Indication: BLAST CELL PROLIFERATION
     Dosage: UNK
     Route: 042
     Dates: start: 20160404, end: 20160408
  2. DASATINIB [Suspect]
     Active Substance: DASATINIB
     Indication: CHRONIC MYELOID LEUKAEMIA
     Dosage: 2 TAB, QD
     Route: 048
     Dates: start: 20160404, end: 20160408
  3. METHOTREXATE. [Suspect]
     Active Substance: METHOTREXATE
     Indication: CHRONIC MYELOID LEUKAEMIA
     Dosage: UNK
     Route: 042
     Dates: start: 20160404, end: 20160408
  4. DASATINIB [Suspect]
     Active Substance: DASATINIB
     Dosage: 70 MG, UNK
     Route: 048

REACTIONS (3)
  - Fungal infection [Unknown]
  - Pyrexia [Unknown]
  - Pneumonia fungal [Recovering/Resolving]

NARRATIVE: CASE EVENT DATE: 201603
